FAERS Safety Report 9200019 (Version 2)
Quarter: 2013Q2

REPORT INFORMATION
  Report Type: Spontaneous
  Country: US (occurrence: US)
  Receive Date: 20130329
  Receipt Date: 20130524
  Transmission Date: 20140414
  Serious: Yes (Other)
  Sender: FDA-Public Use
  Company Number: US-PFIZER INC-2013101642

PATIENT
  Age: 43 Year
  Sex: Female
  Weight: 104 kg

DRUGS (14)
  1. LYRICA [Suspect]
     Indication: FIBROMYALGIA
     Dosage: 50 MG, 3X/DAY
  2. ASPIRIN [Concomitant]
     Indication: CEREBROVASCULAR ACCIDENT
     Dosage: 81 MG, 1X/DAY
  3. FISH OIL [Concomitant]
     Indication: BLOOD CHOLESTEROL ABNORMAL
     Dosage: 2400 MG, 2X/DAY
  4. TIZANIDINE [Concomitant]
     Indication: MIGRAINE
     Dosage: 8 MG, 1X/DAY
  5. SEROQUEL [Concomitant]
     Indication: BIPOLAR DISORDER
     Dosage: 600 MG, 1X/DAY
  6. LOVASTATIN [Concomitant]
     Indication: BLOOD CHOLESTEROL ABNORMAL
     Dosage: 40 MG, 1X/DAY
  7. CLOPIDOGREL [Concomitant]
     Indication: CEREBROVASCULAR ACCIDENT
     Dosage: 75 MG, 1X/DAY
  8. BUSPIRONE [Concomitant]
     Indication: POST-TRAUMATIC STRESS DISORDER
     Dosage: 10 MG, 3X/DAY
  9. BUSPIRONE [Concomitant]
     Indication: ANXIETY
  10. ETODOLAC [Concomitant]
     Indication: FIBROMYALGIA
     Dosage: 500 MG, 2X/DAY
  11. FLUOXETINE [Concomitant]
     Indication: DEPRESSION
     Dosage: UNK, 1X/DAY
  12. DIVALPROEX [Concomitant]
     Indication: BIPOLAR DISORDER
     Dosage: 1500 MG, 1X/DAY
  13. TRILIPIX [Concomitant]
     Indication: BLOOD CHOLESTEROL ABNORMAL
     Dosage: 135 MG, 1X/DAY
  14. FAMOTIDINE [Concomitant]
     Indication: GASTROOESOPHAGEAL REFLUX DISEASE
     Dosage: 20 MG, 1X/DAY

REACTIONS (1)
  - Mental disability [Unknown]
